FAERS Safety Report 8352648-X (Version None)
Quarter: 2012Q2

REPORT INFORMATION
  Report Type: 
  Country: None (occurrence: None)
  Receive Date: 20120511
  Receipt Date: 20120507
  Transmission Date: 20120825
  Serious: Yes (Death, Other)
  Sender: FDA-Public Use
  Company Number: US-SANOFI-AVENTIS-2012SA032433

PATIENT
  Age: 66 Year
  Sex: Male

DRUGS (7)
  1. ZOLEDRONIC [Concomitant]
  2. DOCETAXEL [Concomitant]
  3. ELIGARD [Suspect]
     Route: 065
  4. BICALUTAMIDE [Suspect]
     Route: 065
  5. CALCITRIOL [Concomitant]
  6. CARBOPLATIN [Concomitant]
     Dates: end: 20070701
  7. ELIGARD [Suspect]
     Indication: PROSTATE CANCER
     Route: 065

REACTIONS (7)
  - DYSURIA [None]
  - PROSTATIC SPECIFIC ANTIGEN INCREASED [None]
  - FATIGUE [None]
  - OSTEOPOROSIS [None]
  - NORMOCHROMIC NORMOCYTIC ANAEMIA [None]
  - MALIGNANT PLEURAL EFFUSION [None]
  - LYMPHADENOPATHY [None]
